FAERS Safety Report 5206232-7 (Version None)
Quarter: 2006Q4

REPORT INFORMATION
  Report Type: 
  Country: None (occurrence: None)
  Receive Date: 20061026
  Receipt Date: 20060928
  Transmission Date: 20070319
  Serious: No
  Sender: FDA-Public Use
  Company Number: 2006118859

PATIENT
  Sex: 0

DRUGS (3)
  1. LYRICA [Suspect]
     Dosage: 25 MG (25 MG, 1 IN 1 D)
  2. ZOLOFT [Concomitant]
  3. ALL OTHER THERAPEUTIC PRODUCTS (ALL OTHER THERAPEUTIC PRODUCTS) [Concomitant]

REACTIONS (5)
  - DIZZINESS [None]
  - HYPERSENSITIVITY [None]
  - PSYCHOSOMATIC DISEASE [None]
  - SOMNOLENCE [None]
  - VISION BLURRED [None]
